FAERS Safety Report 19003846 (Version 1)
Quarter: 2021Q1

REPORT INFORMATION
  Report Type: Report from Study
  Country: US (occurrence: US)
  Receive Date: 20210312
  Receipt Date: 20210312
  Transmission Date: 20210420
  Serious: Yes (Other)
  Sender: FDA-Public Use
  Company Number: US-TAKEDA-US202015948

PATIENT
  Sex: Female

DRUGS (2)
  1. HUMAN NORMAL IMMUNOGLOBULIN; LIQUID [Suspect]
     Active Substance: HUMAN IMMUNOGLOBULIN G
     Indication: IMMUNODEFICIENCY COMMON VARIABLE
     Dosage: 5 GRAM, EVERY 5 DAYS
     Route: 058
  2. HUMAN NORMAL IMMUNOGLOBULIN; LIQUID [Suspect]
     Active Substance: HUMAN IMMUNOGLOBULIN G
     Dosage: 2.5 GRAM, EVERY OTHER DAYS
     Route: 058

REACTIONS (10)
  - Diverticulitis [Unknown]
  - Ligament sprain [Unknown]
  - Eye disorder [Unknown]
  - Foot fracture [Unknown]
  - Type 2 diabetes mellitus [Unknown]
  - Haemochromatosis [Unknown]
  - Product availability issue [Unknown]
  - Drug hypersensitivity [Unknown]
  - Systemic lupus erythematosus [Unknown]
  - Parkinson^s disease [Unknown]
